FAERS Safety Report 8891115 (Version 1)
Quarter: 2012Q4

REPORT INFORMATION
  Report Type: 
  Country: ES (occurrence: ES)
  Receive Date: 20121107
  Receipt Date: 20121107
  Transmission Date: 20130627
  Serious: Yes (Hospitalization)
  Sender: FDA-Public Use
  Company Number: ES-MERCK-1211ESP000281

PATIENT
  Age: 65 Year
  Sex: Female

DRUGS (6)
  1. SYCREST [Suspect]
     Indication: MAJOR DEPRESSION
     Dosage: UNK
     Route: 060
     Dates: start: 20121019, end: 20121029
  2. ATENOLOL [Concomitant]
     Indication: HYPERTENSION
  3. CRESTOR [Concomitant]
  4. PARAPRES [Concomitant]
  5. DOBUPAL [Concomitant]
     Indication: DEPRESSION
     Dosage: UNK
     Dates: start: 2012
  6. MIRTAZAPINE [Concomitant]
     Indication: DEPRESSION
     Dosage: UNK
     Dates: start: 2012

REACTIONS (2)
  - Thrombocytopenia [Not Recovered/Not Resolved]
  - Off label use [Unknown]
